FAERS Safety Report 5968029-X (Version None)
Quarter: 2008Q4

REPORT INFORMATION
  Report Type: 
  Country: None (occurrence: None)
  Receive Date: 20081126
  Receipt Date: 20081118
  Transmission Date: 20090506
  Serious: Yes (Other)
  Sender: FDA-Public Use
  Company Number: US-AMGEN-QUU319454

PATIENT
  Sex: Male

DRUGS (2)
  1. ENBREL [Suspect]
     Indication: PSORIASIS
     Route: 058
     Dates: start: 20040904, end: 20080201
  2. ENBREL [Suspect]
     Indication: PSORIATIC ARTHROPATHY

REACTIONS (6)
  - ASPIRATION JOINT [None]
  - DIABETES MELLITUS [None]
  - NASOPHARYNGITIS [None]
  - PROSTATE CANCER [None]
  - PSORIATIC ARTHROPATHY [None]
  - STRESS [None]
